FAERS Safety Report 20127966 (Version 1)
Quarter: 2021Q4

REPORT INFORMATION
  Report Type: Spontaneous
  Country: US (occurrence: None)
  Receive Date: 20211129
  Receipt Date: 20211129
  Transmission Date: 20220303
  Serious: No
  Sender: FDA-Public Use
  Company Number: US-ROCHE-2887027

PATIENT
  Sex: Male
  Weight: 104.42 kg

DRUGS (4)
  1. HERCEPTIN [Suspect]
     Active Substance: TRASTUZUMAB
     Indication: Salivary gland cancer
     Dosage: X 6 TREATMENTS TOTAL ;ONGOING: NO
     Route: 042
     Dates: start: 2021
  2. HERCEPTIN [Suspect]
     Active Substance: TRASTUZUMAB
     Dosage: YES
     Route: 042
     Dates: start: 2021
  3. HYDROCODONE [Concomitant]
     Active Substance: HYDROCODONE
  4. METHADONE [Concomitant]
     Active Substance: METHADONE HYDROCHLORIDE

REACTIONS (4)
  - Vomiting projectile [Recovered/Resolved]
  - Dehydration [Recovering/Resolving]
  - Weight decreased [Recovering/Resolving]
  - Off label use [Unknown]

NARRATIVE: CASE EVENT DATE: 20210101
